FAERS Safety Report 20817050 (Version 26)
Quarter: 2025Q4

REPORT INFORMATION
  Report Type: Report from Study
  Country: US (occurrence: US)
  Receive Date: 20220512
  Receipt Date: 20251020
  Transmission Date: 20260118
  Serious: Yes (Hospitalization, Other)
  Sender: INSMED
  Company Number: US-INSMED, INC.-2021-09527-US

PATIENT
  Sex: Female
  Weight: 36.794 kg

DRUGS (10)
  1. ARIKAYCE [Suspect]
     Active Substance: AMIKACIN
     Indication: Mycobacterium avium complex infection
     Dosage: 590 MILLIGRAM, QD
     Route: 055
     Dates: start: 20210916, end: 20210922
  2. ARIKAYCE [Suspect]
     Active Substance: AMIKACIN
     Dosage: 590 MILLIGRAM, QD
     Route: 055
     Dates: start: 202109, end: 2021
  3. ARIKAYCE [Suspect]
     Active Substance: AMIKACIN
     Dosage: 590 MILLIGRAM, QD
     Route: 055
     Dates: end: 202205
  4. ARIKAYCE [Suspect]
     Active Substance: AMIKACIN
     Dosage: 590 MILLIGRAM, QD
     Route: 055
     Dates: start: 202205, end: 2022
  5. ARIKAYCE [Suspect]
     Active Substance: AMIKACIN
     Dosage: 590 MILLIGRAM, TIW
     Route: 055
     Dates: start: 2022
  6. ARIKAYCE [Suspect]
     Active Substance: AMIKACIN
     Dosage: 590 MILLIGRAM, ONCE OR TWICE A WEEK
     Route: 055
  7. ARIKAYCE [Suspect]
     Active Substance: AMIKACIN
     Dosage: 590 MILLIGRAM, TIW
     Route: 055
     Dates: end: 2024
  8. ARIKAYCE [Suspect]
     Active Substance: AMIKACIN
     Dosage: 590 MILLIGRAM, TIW
     Route: 055
     Dates: start: 2024, end: 2024
  9. ARIKAYCE [Suspect]
     Active Substance: AMIKACIN
     Dosage: 590 MILLIGRAM, EVERY TWO DAY OR LESS
     Route: 055
     Dates: start: 2024, end: 202503
  10. ARIKAYCE [Suspect]
     Active Substance: AMIKACIN
     Dosage: 590 MILLIGRAM, TIW
     Route: 055
     Dates: start: 2025

REACTIONS (25)
  - Condition aggravated [Unknown]
  - Hospitalisation [Unknown]
  - Hospitalisation [Unknown]
  - Hospitalisation [Unknown]
  - Hospitalisation [Unknown]
  - Hospitalisation [Unknown]
  - Hospitalisation [Unknown]
  - Adverse reaction [Unknown]
  - Gastritis [Not Recovered/Not Resolved]
  - Urinary tract infection [Unknown]
  - Tooth infection [Unknown]
  - Aphonia [Recovered/Resolved]
  - Aphonia [Not Recovered/Not Resolved]
  - Throat irritation [Unknown]
  - Productive cough [Not Recovered/Not Resolved]
  - Cough [Recovered/Resolved]
  - Cough [Recovering/Resolving]
  - Dysphonia [Recovered/Resolved]
  - Dysphonia [Not Recovered/Not Resolved]
  - Illness [Not Recovered/Not Resolved]
  - Haemoptysis [Unknown]
  - Product dose omission issue [Unknown]
  - Therapy interrupted [Unknown]
  - Off label use [Unknown]
  - Intentional dose omission [Unknown]

NARRATIVE: CASE EVENT DATE: 20210101
